FAERS Safety Report 9674799 (Version 1)
Quarter: 2013Q4

REPORT INFORMATION
  Report Type: Spontaneous
  Country: US (occurrence: None)
  Receive Date: 20131106
  Receipt Date: 20131106
  Transmission Date: 20140711
  Serious: Yes (Hospitalization)
  Sender: FDA-Public Use
  Company Number: None

PATIENT
  Age: 61 Year
  Sex: Female

DRUGS (3)
  1. SOMAVERT [Suspect]
     Indication: ACROMEGALY
     Route: 058
     Dates: start: 20120724
  2. SOMAVERT [Suspect]
     Indication: GIGANTISM
     Route: 058
     Dates: start: 20120724
  3. SOMAVERT [Suspect]
     Indication: HYPOPITUITARISM
     Route: 058
     Dates: start: 20120724

REACTIONS (1)
  - Chest pain [None]
